FAERS Safety Report 18110109 (Version 1)
Quarter: 2020Q3

REPORT INFORMATION
  Report Type: Other
  Country: SE (occurrence: SE)
  Receive Date: 20200804
  Receipt Date: 20200804
  Transmission Date: 20201103
  Serious: Yes (Hospitalization)
  Sender: FDA-Public Use
  Company Number: SE-GLENMARK PHARMACEUTICALS-2020GMK048951

PATIENT

DRUGS (1)
  1. SOLIFENACIN SUCCINATE. [Suspect]
     Active Substance: SOLIFENACIN SUCCINATE
     Indication: MICTURITION URGENCY
     Dosage: 10 MILLIGRAM
     Route: 065
     Dates: start: 20200618, end: 202007

REACTIONS (1)
  - Fall [Unknown]

NARRATIVE: CASE EVENT DATE: 202006
